FAERS Safety Report 8168543-5 (Version None)
Quarter: 2012Q1

REPORT INFORMATION
  Report Type: 
  Country: None (occurrence: None)
  Receive Date: 20120227
  Receipt Date: 20120227
  Transmission Date: 20120608
  Serious: Yes (Life-Threatening, Hospitalization)
  Sender: FDA-Public Use
  Company Number: None

PATIENT
  Age: 15 Year
  Sex: Female
  Weight: 83.007 kg

DRUGS (1)
  1. PROZAC [Suspect]
     Indication: DEPRESSION
     Dosage: QD
     Route: 048
     Dates: start: 20120115, end: 20120220

REACTIONS (5)
  - MENTAL DISORDER [None]
  - SUICIDAL IDEATION [None]
  - AGGRESSION [None]
  - HALLUCINATION, AUDITORY [None]
  - FEELING ABNORMAL [None]
